FAERS Safety Report 7513725-6 (Version None)
Quarter: 2011Q2

REPORT INFORMATION
  Report Type: 
  Country: None (occurrence: None)
  Receive Date: 20110531
  Receipt Date: 20110526
  Transmission Date: 20111010
  Serious: Yes (Other)
  Sender: FDA-Public Use
  Company Number: GXKR2011DE01639

PATIENT
  Sex: Female
  Weight: 3.31 kg

DRUGS (1)
  1. TOPIRAMATE [Suspect]
     Dosage: MATERNAL DOSE 125 MG DAILY
     Route: 064

REACTIONS (6)
  - CONVULSION [None]
  - DRUG WITHDRAWAL SYNDROME NEONATAL [None]
  - CONVULSION NEONATAL [None]
  - WITHDRAWAL SYNDROME [None]
  - MATERNAL DRUGS AFFECTING FOETUS [None]
  - DRUG EXPOSURE DURING PREGNANCY [None]
